FAERS Safety Report 6735063-1 (Version None)
Quarter: 2010Q2

REPORT INFORMATION
  Report Type: 
  Country: None (occurrence: None)
  Receive Date: 20100521
  Receipt Date: 20100510
  Transmission Date: 20101027
  Serious: No
  Sender: FDA-Public Use
  Company Number: US-JNJFOC-20100504172

PATIENT
  Sex: Female
  Weight: 83.01 kg

DRUGS (6)
  1. DURAGESIC-100 [Suspect]
     Indication: PAIN
     Route: 062
  2. DURAGESIC-100 [Suspect]
     Route: 062
  3. HYDROXYZINE [Concomitant]
     Indication: ANXIETY
     Route: 048
  4. TIZANIDINE HCL [Concomitant]
     Indication: MUSCLE RELAXANT THERAPY
     Dosage: AS NEEDED
     Route: 048
  5. LORA TAB [Concomitant]
     Indication: OSTEOARTHRITIS
     Dosage: 7.5/500 MG
     Route: 048
  6. XANAX [Concomitant]
     Indication: ANXIETY
     Route: 048

REACTIONS (4)
  - APPLICATION SITE ERYTHEMA [None]
  - APPLICATION SITE VESICLES [None]
  - PRODUCT ADHESION ISSUE [None]
  - WRONG TECHNIQUE IN DRUG USAGE PROCESS [None]
